FAERS Safety Report 7665395 (Version 5)
Quarter: 2013Q3

REPORT INFORMATION
  Report Type: Spontaneous
  Country: US (occurrence: US)
  Receive Date: 20101112
  Receipt Date: 20130723
  Transmission Date: 20140515
  Serious: Yes (Hospitalization, Other)
  Sender: FDA-Public Use
  Company Number: US-JNJFOC-20100806220

PATIENT
  Age: 53 Year
  Sex: Male

DRUGS (2)
  1. LEVAQUIN [Suspect]
     Indication: PROSTATE INFECTION
     Route: 048
     Dates: start: 200806, end: 200807
  2. PREDNISONE [Suspect]
     Indication: PRODUCT USED FOR UNKNOWN INDICATION
     Route: 048

REACTIONS (12)
  - Tendon rupture [Unknown]
  - Muscle rupture [Recovering/Resolving]
  - Tendon rupture [Recovering/Resolving]
  - Tendon disorder [Unknown]
  - Neuropathy peripheral [Recovering/Resolving]
  - Rotator cuff syndrome [Unknown]
  - Radial nerve palsy [Recovering/Resolving]
  - Muscle atrophy [Unknown]
  - Tendon disorder [Unknown]
  - Tendon disorder [Unknown]
  - Tendon disorder [Unknown]
  - Feeling abnormal [Unknown]
